FAERS Safety Report 19068486 (Version 1)
Quarter: 2021Q1

REPORT INFORMATION
  Report Type: Spontaneous
  Country: US (occurrence: US)
  Receive Date: 20210327
  Receipt Date: 20210327
  Transmission Date: 20210420
  Serious: Yes (Death, Hospitalization)
  Sender: FDA-Public Use
  Company Number: None

PATIENT
  Age: 64 Year
  Sex: Female
  Weight: 78.11 kg

DRUGS (2)
  1. GEMCITABINE HYDROCHLORIDE. [Suspect]
     Active Substance: GEMCITABINE HYDROCHLORIDE
     Dates: end: 20210225
  2. CISPLATIN. [Suspect]
     Active Substance: CISPLATIN
     Dates: end: 20210225

REACTIONS (4)
  - Hypotension [None]
  - Colitis [None]
  - Condition aggravated [None]
  - Sepsis [None]

NARRATIVE: CASE EVENT DATE: 20210305
